FAERS Safety Report 24172537 (Version 1)
Quarter: 2024Q3

REPORT INFORMATION
  Report Type: Spontaneous
  Country: FI (occurrence: FI)
  Receive Date: 20240805
  Receipt Date: 20240805
  Transmission Date: 20241017
  Serious: Yes (Hospitalization)
  Sender: AMGEN
  Company Number: FI-AMGEN-FINSP2024150392

PATIENT
  Age: 73 Year
  Sex: Female

DRUGS (2)
  1. PROLIA [Suspect]
     Active Substance: DENOSUMAB
     Indication: Osteoporosis postmenopausal
     Dosage: 60 MILLIGRAM, Q6MO (1 INJECTION SUBCUTANEOUS EVERY 6 MONTHS /1 INJECTION SUBCUTANEOUS EVERY 6 MONTHS
     Route: 058
     Dates: start: 2012, end: 20240704
  2. CALCIUM CARBONATE\CHOLECALCIFEROL [Concomitant]
     Active Substance: CALCIUM CARBONATE\CHOLECALCIFEROL
     Indication: Osteoporosis postmenopausal
     Dosage: 1X2/VRK /1X2 A DAY
     Route: 048
     Dates: start: 2012

REACTIONS (3)
  - Stress fracture [Not Recovered/Not Resolved]
  - Humerus fracture [Not Recovered/Not Resolved]
  - Atypical femur fracture [Not Recovered/Not Resolved]

NARRATIVE: CASE EVENT DATE: 20240704
